FAERS Safety Report 17497610 (Version 1)
Quarter: 2020Q1

REPORT INFORMATION
  Report Type: Spontaneous
  Country: US (occurrence: US)
  Receive Date: 20200304
  Receipt Date: 20200304
  Transmission Date: 20200409
  Serious: Yes (Hospitalization)
  Sender: FDA-Public Use
  Company Number: US-PFIZER INC-2019363340

PATIENT
  Age: 92 Year
  Sex: Female

DRUGS (1)
  1. IBRANCE [Suspect]
     Active Substance: PALBOCICLIB
     Indication: BREAST CANCER
     Dosage: 125 MG, CYCLIC (ONCE DAILY WITH FOOD 21 DAYS ON AND 7 DAYS OFF)
     Dates: start: 20190218

REACTIONS (4)
  - Second primary malignancy [Unknown]
  - Product dose omission [Unknown]
  - Product dispensing error [Unknown]
  - Colon neoplasm [Unknown]
